FAERS Safety Report 4632778-6 (Version None)
Quarter: 2005Q2

REPORT INFORMATION
  Report Type: 
  Country: None (occurrence: None)
  Receive Date: 20050408
  Receipt Date: 20050408
  Transmission Date: 20051028
  Serious: No
  Sender: FDA-Public Use
  Company Number: None

PATIENT
  Age: 80 Year
  Sex: Male
  Weight: 76.6579 kg

DRUGS (4)
  1. CARBOPLATIN [Suspect]
     Indication: BLADDER CANCER
     Dosage: 352 MG IV Q 21 DAY [7TH CYCLE (21 DAYS
     Route: 042
  2. GEMZAR [Concomitant]
  3. ALOXI [Concomitant]
  4. DECADRON [Concomitant]

REACTIONS (4)
  - DISCOMFORT [None]
  - DYSPNOEA [None]
  - FLUSHING [None]
  - INFUSION RELATED REACTION [None]
